FAERS Safety Report 21534059 (Version 1)
Quarter: 2022Q4

REPORT INFORMATION
  Report Type: Spontaneous
  Country: US (occurrence: US)
  Receive Date: 20221101
  Receipt Date: 20221101
  Transmission Date: 20230113
  Serious: No
  Sender: FDA-Public Use
  Company Number: US-PARATEK PHARMACEUTICALS, INC.-2022PTK00087

PATIENT
  Age: 52 Year
  Sex: Female

DRUGS (2)
  1. NUZYRA [Suspect]
     Active Substance: OMADACYCLINE
     Indication: Skin infection
  2. NUZYRA [Suspect]
     Active Substance: OMADACYCLINE
     Indication: Lyme disease

REACTIONS (2)
  - Jarisch-Herxheimer reaction [Recovered/Resolved]
  - Off label use [Unknown]
